FAERS Safety Report 8849985 (Version 1)
Quarter: 2012Q4

REPORT INFORMATION
  Report Type: 
  Country: PL (occurrence: PL)
  Receive Date: 20121019
  Receipt Date: 20121019
  Transmission Date: 20130627
  Serious: Yes (Hospitalization, Other)
  Sender: FDA-Public Use
  Company Number: PL-BRISTOL-MYERS SQUIBB COMPANY-17032533

PATIENT
  Age: 66 Year
  Sex: Male

DRUGS (3)
  1. SPRYCEL [Suspect]
     Indication: CHRONIC MYELOID LEUKAEMIA
     Dosage: 140MG
     Dates: start: 20120805
  2. HYDROXYCARBAMIDE [Suspect]
     Dates: start: 20120207
  3. IMATINIB MESYLATE [Suspect]
     Dates: start: 20120217

REACTIONS (3)
  - Pancytopenia [Unknown]
  - Thrombocytopenia [Unknown]
  - Ischaemia [Unknown]
